FAERS Safety Report 6216198-9 (Version None)
Quarter: 2009Q2

REPORT INFORMATION
  Report Type: 
  Country: None (occurrence: None)
  Receive Date: 20090605
  Receipt Date: 20090526
  Transmission Date: 20091009
  Serious: Yes (Hospitalization)
  Sender: FDA-Public Use
  Company Number: A0734637A

PATIENT
  Age: 54 Year
  Sex: Male
  Weight: 76.4 kg

DRUGS (5)
  1. AVANDIA [Suspect]
     Indication: TYPE 2 DIABETES MELLITUS
     Dosage: 8MG PER DAY
     Route: 048
     Dates: start: 20040801, end: 20070501
  2. GLUCOPHAGE [Concomitant]
     Dates: start: 20001001, end: 20081118
  3. METFORMIN HYDROCHLORIDE [Concomitant]
     Dates: start: 20001001, end: 20081118
  4. GLUCOTROL [Concomitant]
     Dates: start: 20040829, end: 20050307
  5. LANTUS [Concomitant]
     Dates: start: 20050601, end: 20081115

REACTIONS (2)
  - ARTERIOSCLEROSIS [None]
  - MYOCARDIAL ISCHAEMIA [None]
